FAERS Safety Report 4699710-0 (Version None)
Quarter: 2005Q2

REPORT INFORMATION
  Report Type: 
  Country: None (occurrence: None)
  Receive Date: 20050623
  Receipt Date: 20050609
  Transmission Date: 20051028
  Serious: No
  Sender: FDA-Public Use
  Company Number: 05H-087-0300229-00

PATIENT
  Age: 58 Year
  Sex: Male

DRUGS (2)
  1. PENTAZOCINE LACTATE [Suspect]
     Dosage: 15 MG, DAILY, INJECTION
     Dates: start: 19960301
  2. FAMOTIDINE [Suspect]
     Dosage: 20 MG, DAILY, INJECTION
     Dates: start: 19960301

REACTIONS (1)
  - RENAL IMPAIRMENT [None]
